FAERS Safety Report 11348520 (Version 1)
Quarter: 2015Q3

REPORT INFORMATION
  Report Type: Spontaneous
  Country: BR (occurrence: BR)
  Receive Date: 20150806
  Receipt Date: 20150806
  Transmission Date: 20151125
  Serious: Yes (Hospitalization, Other)
  Sender: FDA-Public Use
  Company Number: BR-ABBVIE-14P-020-1213153-00

PATIENT
  Age: 44 Year
  Sex: Female
  Weight: 59 kg

DRUGS (11)
  1. SYNTHROID [Suspect]
     Active Substance: LEVOTHYROXINE SODIUM
     Route: 048
  2. RIVOTRIL [Concomitant]
     Active Substance: CLONAZEPAM
     Indication: ANXIETY
     Route: 048
     Dates: start: 2005
  3. SYNTHROID [Suspect]
     Active Substance: LEVOTHYROXINE SODIUM
     Indication: THYROIDECTOMY
     Route: 048
     Dates: start: 2011
  4. RIVOTRIL [Concomitant]
     Active Substance: CLONAZEPAM
     Indication: INSOMNIA
  5. SYNTHROID [Suspect]
     Active Substance: LEVOTHYROXINE SODIUM
     Dosage: TUESDAY, WEDNESDAY, FRIDAY, SATURDAY AND SUNDAY: 1 TABLET OF 75 MCG/DAY
     Route: 048
  6. SYNTHROID [Suspect]
     Active Substance: LEVOTHYROXINE SODIUM
     Dosage: ORIENTED BY PHYSICIAN TO SPLIT 50 MCG TABLETS TO TOTALIZE 75 MCG; DAILY DOSE: 75 MCG
     Route: 048
  7. SYNTHROID [Suspect]
     Active Substance: LEVOTHYROXINE SODIUM
     Route: 065
     Dates: start: 20140127
  8. SYNTHROID [Suspect]
     Active Substance: LEVOTHYROXINE SODIUM
     Dosage: MONDAY AND THURSDAY: 1 TABLET OF 88 MCG/DAY.
     Route: 048
     Dates: end: 201410
  9. BROMAZEPAM [Concomitant]
     Active Substance: BROMAZEPAM
     Indication: ANXIETY
     Dosage: AT NIGHT, 6 MILLIGRAM DAILY
     Route: 048
     Dates: start: 2009
  10. ATENSINA [Concomitant]
     Active Substance: CLONIDINE
     Indication: HYPERTENSION
     Dosage: AT NIGHT,0.05 MILLIGRAM DAILY
     Route: 048
     Dates: start: 201312, end: 20140129
  11. EUPRESSIN [Concomitant]
     Indication: HYPERTENSION
     Route: 048

REACTIONS (9)
  - Diarrhoea [Not Recovered/Not Resolved]
  - Gastrointestinal tract irritation [Not Recovered/Not Resolved]
  - Hysterectomy [Recovered/Resolved]
  - Muscle spasms [Recovered/Resolved]
  - Headache [Recovered/Resolved]
  - Gastrointestinal infection [Recovered/Resolved]
  - Cough [Not Recovered/Not Resolved]
  - Hyperhidrosis [Recovered/Resolved]
  - Haemorrhage [Recovered/Resolved]

NARRATIVE: CASE EVENT DATE: 2012
